FAERS Safety Report 14288229 (Version 2)
Quarter: 2019Q1

REPORT INFORMATION
  Report Type: Report from Study
  Country: US (occurrence: US)
  Receive Date: 20171215
  Receipt Date: 20190221
  Transmission Date: 20190417
  Serious: Yes (Other)
  Sender: FDA-Public Use
  Company Number: US-AMGEN-USASP2017182706

PATIENT
  Sex: Female

DRUGS (2)
  1. ENBREL [Suspect]
     Active Substance: ETANERCEPT
     Indication: RHEUMATOID ARTHRITIS
     Dosage: UNK UNK, QWK
     Route: 065
     Dates: start: 2015
  2. ENBREL [Suspect]
     Active Substance: ETANERCEPT
     Indication: MULTICENTRIC RETICULOHISTIOCYTOSIS
     Dosage: UNK UNK, Q2WK
     Route: 065

REACTIONS (5)
  - Musculoskeletal disorder [Unknown]
  - Frustration tolerance decreased [Unknown]
  - Nasopharyngitis [Unknown]
  - Off label use [Unknown]
  - Respiratory disorder [Unknown]

NARRATIVE: CASE EVENT DATE: 2015
